FAERS Safety Report 11825116 (Version 4)
Quarter: 2016Q2

REPORT INFORMATION
  Report Type: Spontaneous
  Country: US (occurrence: US)
  Receive Date: 20151211
  Receipt Date: 20160616
  Transmission Date: 20160815
  Serious: Yes (Hospitalization)
  Sender: FDA-Public Use
  Company Number: US-ASTRAZENECA-2015SF23277

PATIENT
  Age: 813 Month
  Sex: Male
  Weight: 59 kg

DRUGS (12)
  1. TUDORZA PRESSAIR [Suspect]
     Active Substance: ACLIDINIUM BROMIDE
     Indication: CHRONIC OBSTRUCTIVE PULMONARY DISEASE
     Route: 055
     Dates: start: 201504
  2. TUDORZA PRESSAIR [Suspect]
     Active Substance: ACLIDINIUM BROMIDE
     Indication: CHRONIC OBSTRUCTIVE PULMONARY DISEASE
     Dosage: 1 INHALATION TWO TIMES DAILY
     Route: 055
     Dates: start: 201511
  3. PROVENTIL HFA [Concomitant]
     Active Substance: ALBUTEROL SULFATE
     Indication: RESPIRATORY THERAPY
     Dosage: AS NEEDED
     Route: 055
  4. PREDNISONE. [Concomitant]
     Active Substance: PREDNISONE
     Indication: DYSPNOEA
  5. TUDORZA PRESSAIR [Suspect]
     Active Substance: ACLIDINIUM BROMIDE
     Indication: CHRONIC OBSTRUCTIVE PULMONARY DISEASE
     Route: 055
     Dates: start: 20150923, end: 20151230
  6. PREDNISONE. [Concomitant]
     Active Substance: PREDNISONE
     Indication: HOSPITALISATION
  7. OXYGEN. [Concomitant]
     Active Substance: OXYGEN
     Indication: DYSPNOEA
     Dosage: AS REQUIRED
     Dates: start: 201504
  8. TUDORZA PRESSAIR [Suspect]
     Active Substance: ACLIDINIUM BROMIDE
     Indication: CHRONIC OBSTRUCTIVE PULMONARY DISEASE
     Dosage: 400 MCG TWICE DAILY, ON AND OFF AS NEEDED
     Route: 055
  9. LISINOPRIL. [Suspect]
     Active Substance: LISINOPRIL
     Indication: BLOOD PRESSURE ABNORMAL
     Route: 048
     Dates: start: 2001
  10. CHEMICAL STAIN COMPOUND [Suspect]
     Active Substance: UNSPECIFIED INGREDIENT
     Route: 065
  11. METFORMIN [Concomitant]
     Active Substance: METFORMIN HYDROCHLORIDE
  12. GLIPIZIDE. [Concomitant]
     Active Substance: GLIPIZIDE
     Dosage: ONCE

REACTIONS (9)
  - Dyspnoea [Unknown]
  - Memory impairment [Not Recovered/Not Resolved]
  - Device malfunction [Unknown]
  - Off label use [Unknown]
  - Exposure to toxic agent [Unknown]
  - Drug dose omission [Not Recovered/Not Resolved]
  - Intentional product misuse [Unknown]
  - Blood pressure increased [Unknown]
  - Lung disorder [Unknown]

NARRATIVE: CASE EVENT DATE: 201504
